FAERS Safety Report 18001911 (Version 4)
Quarter: 2020Q3

REPORT INFORMATION
  Report Type: Report from Study
  Country: None (occurrence: US)
  Receive Date: 20200710
  Receipt Date: 20200908
  Transmission Date: 20201103
  Serious: Yes (Other)
  Sender: FDA-Public Use
  Company Number: US-ABBVIE-20K-163-3475622-00

PATIENT
  Age: 73 Year
  Sex: Female
  Weight: 68.1 kg

DRUGS (2)
  1. HUMIRA [Suspect]
     Active Substance: ADALIMUMAB
     Route: 058
     Dates: start: 202006
  2. HUMIRA [Suspect]
     Active Substance: ADALIMUMAB
     Indication: RHEUMATOID ARTHRITIS
     Route: 058
     Dates: start: 2018, end: 2020

REACTIONS (4)
  - Arthropathy [Not Recovered/Not Resolved]
  - Laryngitis [Not Recovered/Not Resolved]
  - Rotator cuff syndrome [Unknown]
  - Intentional product misuse [Not Recovered/Not Resolved]

NARRATIVE: CASE EVENT DATE: 202003
